FAERS Safety Report 12293178 (Version 1)
Quarter: 2016Q2

REPORT INFORMATION
  Report Type: Report from Study
  Country: US (occurrence: US)
  Receive Date: 20160421
  Receipt Date: 20160421
  Transmission Date: 20160815
  Serious: No
  Sender: FDA-Public Use
  Company Number: US-AMGEN-USASL2016031443

PATIENT
  Age: 60 Year
  Sex: Female

DRUGS (1)
  1. REPATHA [Suspect]
     Active Substance: EVOLOCUMAB
     Indication: DYSLIPIDAEMIA
     Dosage: 140 MG, Q2WK
     Route: 065
     Dates: start: 20150924

REACTIONS (11)
  - Wrong technique in product usage process [Unknown]
  - Drug dose omission [Unknown]
  - Device malfunction [Unknown]
  - Headache [Unknown]
  - Anxiety [Unknown]
  - Inappropriate schedule of drug administration [Unknown]
  - Injection site extravasation [Unknown]
  - Injection site pain [Unknown]
  - Product quality issue [Unknown]
  - Rhinorrhoea [Not Recovered/Not Resolved]
  - Underdose [Unknown]
